FAERS Safety Report 24762577 (Version 1)
Quarter: 2024Q4

REPORT INFORMATION
  Report Type: Spontaneous
  Country: US (occurrence: US)
  Receive Date: 20241221
  Receipt Date: 20241221
  Transmission Date: 20250115
  Serious: Yes (Death, Other)
  Sender: AMGEN
  Company Number: US-AMGEN-USASP2024248858

PATIENT
  Age: 37 Year
  Sex: Male

DRUGS (11)
  1. PREDNISONE [Suspect]
     Active Substance: PREDNISONE
     Indication: HTLV-1 test positive
     Dosage: UNK X2
     Route: 065
  2. ROMIDEPSIN [Suspect]
     Active Substance: ROMIDEPSIN
     Indication: HTLV-1 test positive
     Dosage: 10 MILLIGRAM/SQ. METER,  (DAY 1, 8, 15 Q28 DAYS,, DOSE REDUCED DUE TO T. BILI 3.5GM/DL)
     Route: 040
  3. ROMIDEPSIN [Suspect]
     Active Substance: ROMIDEPSIN
     Dosage: 6 MILLIGRAM/SQ. METER (DOSE REDUCED)
     Route: 065
  4. RITUXIMAB [Concomitant]
     Active Substance: RITUXIMAB
     Indication: HTLV-1 test positive
     Dosage: UNK X2
  5. ETOPOSIDE [Concomitant]
     Active Substance: ETOPOSIDE
     Indication: HTLV-1 test positive
     Dosage: UNK X2
  6. VINCRISTINE [Concomitant]
     Active Substance: VINCRISTINE
     Indication: HTLV-1 test positive
     Dosage: UNK X2
  7. CYCLOPHOSPHAMIDE [Concomitant]
     Active Substance: CYCLOPHOSPHAMIDE
     Indication: HTLV-1 test positive
     Dosage: UNK
  8. DOXORUBICIN [Concomitant]
     Active Substance: DOXORUBICIN
     Indication: HTLV-1 test positive
     Dosage: UNK X2
  9. CARBOPLATIN [Concomitant]
     Active Substance: CARBOPLATIN
     Indication: HTLV-1 test positive
     Dosage: UNK
  10. METHOTREXATE [Concomitant]
     Active Substance: METHOTREXATE
     Indication: HTLV-1 test positive
     Dosage: UNK HIGH DOSE
  11. IFOSFAMIDE [Concomitant]
     Active Substance: IFOSFAMIDE
     Indication: HTLV-1 test positive

REACTIONS (3)
  - HTLV-1 test positive [Fatal]
  - Adult T-cell lymphoma/leukaemia [Fatal]
  - Thrombocytopenia [Unknown]
